FAERS Safety Report 4927604-1 (Version None)
Quarter: 2006Q1

REPORT INFORMATION
  Report Type: 
  Country: None (occurrence: None)
  Receive Date: 20060228
  Receipt Date: 20030121
  Transmission Date: 20060701
  Serious: Yes (Other)
  Sender: FDA-Public Use
  Company Number: US-MERCK-0301USA02076

PATIENT
  Sex: Female

DRUGS (1)
  1. VIOXX [Suspect]
     Indication: PAIN
     Route: 048

REACTIONS (3)
  - CARDIOVASCULAR DISORDER [None]
  - DECREASED ACTIVITY [None]
  - RENAL FAILURE [None]
